FAERS Safety Report 10676527 (Version 2)
Quarter: 2014Q4

REPORT INFORMATION
  Report Type: Spontaneous
  Country: FR (occurrence: FR)
  Receive Date: 20141226
  Receipt Date: 20141226
  Transmission Date: 20150529
  Serious: Yes (Hospitalization, Other)
  Sender: FDA-Public Use
  Company Number: PHHY2014FR152244

PATIENT
  Age: 18 Year
  Sex: Male

DRUGS (3)
  1. SANDIMMUNE [Suspect]
     Active Substance: CYCLOSPORINE
     Dosage: 50 MG/ML, (160 MG, THIRD SECOND INFUSION ADMINISTRED WITHIN 24HOURS)
     Route: 042
     Dates: start: 20141110, end: 20141110
  2. SANDIMMUNE [Suspect]
     Active Substance: CYCLOSPORINE
     Indication: PRODUCT USED FOR UNKNOWN INDICATION
     Dosage: 50 MG/ML, (160 MG, ONCE FIRST INFUSION ADMINISTRED WITHIN TWO HOURS)
     Route: 042
     Dates: start: 20141109
  3. SANDIMMUNE [Suspect]
     Active Substance: CYCLOSPORINE
     Dosage: 50 MG/ML, (160 MG, ONCE SECOND INFUSION ADMINISTRED WITHIN TWO HOURS)
     Route: 042
     Dates: start: 20141109, end: 20141109

REACTIONS (7)
  - Vomiting [Recovered/Resolved]
  - Tachycardia [Recovered/Resolved]
  - Hyperhidrosis [Recovered/Resolved]
  - Anaphylactoid reaction [Recovered/Resolved]
  - Oxygen saturation decreased [Recovered/Resolved]
  - Hypersensitivity [Recovered/Resolved]
  - Hot flush [Recovered/Resolved]

NARRATIVE: CASE EVENT DATE: 201411
